FAERS Safety Report 5668207-3 (Version None)
Quarter: 2008Q1

REPORT INFORMATION
  Report Type: 
  Country: None (occurrence: None)
  Receive Date: 20080315
  Receipt Date: 20080218
  Transmission Date: 20080703
  Serious: No
  Sender: FDA-Public Use
  Company Number: US-ABBOTT-08P-163-0438964-00

PATIENT
  Sex: Female
  Weight: 54.48 kg

DRUGS (12)
  1. HUMIRA [Suspect]
     Indication: CROHN'S DISEASE
     Dosage: STARTER DOSE
     Route: 058
     Dates: start: 20080107
  2. HUMIRA [Suspect]
  3. HUMIRA [Suspect]
  4. MAGNESIUM HYDROXIDE TAB [Concomitant]
     Indication: MINERAL SUPPLEMENTATION
     Route: 048
  5. CLONAZEPAM [Concomitant]
     Indication: ANXIETY
     Route: 048
  6. OXYCODONE HCL [Concomitant]
     Indication: PAIN
     Route: 048
  7. ONDANSETRON [Concomitant]
     Indication: PROPHYLAXIS OF NAUSEA AND VOMITING
     Route: 048
  8. ONDANSETRON [Concomitant]
     Indication: CROHN'S DISEASE
  9. PHENERGAN HCL [Concomitant]
     Indication: PROPHYLAXIS OF NAUSEA AND VOMITING
     Route: 048
  10. PHENERGAN HCL [Concomitant]
     Indication: CROHN'S DISEASE
  11. HYOSCYAMINE SULFATE [Concomitant]
     Indication: DIARRHOEA
     Route: 048
  12. FENTANYL TRANSDERMAL SYSTEM [Concomitant]
     Indication: PAIN
     Route: 048

REACTIONS (6)
  - ARTHRALGIA [None]
  - CHILLS [None]
  - INFLUENZA LIKE ILLNESS [None]
  - MYALGIA [None]
  - PYREXIA [None]
  - SINUS CONGESTION [None]
